FAERS Safety Report 8538871-X (Version None)
Quarter: 2012Q3

REPORT INFORMATION
  Report Type: 
  Country: None (occurrence: None)
  Receive Date: 20120726
  Receipt Date: 20120711
  Transmission Date: 20120928
  Serious: Yes (Hospitalization, Other)
  Sender: FDA-Public Use
  Company Number: US-009507513-1103USA01430

PATIENT

DRUGS (13)
  1. ALBUTEROL [Concomitant]
     Indication: ASTHMA
     Dosage: INH
     Dates: start: 20020701, end: 20061201
  2. ADVAIR DISKUS 100/50 [Concomitant]
     Indication: ASTHMA
     Dosage: INH
     Dates: start: 20060201
  3. ALENDRONATE SODIUM [Suspect]
     Dosage: 70 UNK, UNK
     Route: 048
     Dates: start: 20081223
  4. PROAIR (ALBUTEROL SULFATE) [Concomitant]
     Indication: ASTHMA
     Dosage: INH
     Dates: start: 20070401
  5. SOLU-MEDROL [Concomitant]
     Indication: ASTHMA
     Dosage: IV
  6. FOSAMAX [Suspect]
     Dosage: UNK
     Route: 048
     Dates: start: 19980101
  7. ALENDRONATE SODIUM [Suspect]
     Dosage: 70 ORAL
     Dates: start: 20090930
  8. ALENDRONATE SODIUM [Suspect]
     Indication: OSTEOPOROSIS
     Dosage: 70 MG, UNK
     Route: 048
     Dates: start: 20080428
  9. PREDNISONE [Concomitant]
     Indication: ASTHMA
     Dosage: ORAL
     Dates: start: 19960101
  10. SINGULAIR [Concomitant]
     Dosage: INH
     Dates: start: 20060301
  11. FOSAMAX [Suspect]
     Dosage: 70 MG, QD
     Route: 048
  12. PROVENTIL [Concomitant]
     Dosage: INH
     Dates: start: 20070101, end: 20070301
  13. FOSAMAX [Suspect]
     Indication: OSTEOPOROSIS
     Dosage: 70 MG, QW
     Route: 048
     Dates: start: 20030121, end: 20071105

REACTIONS (38)
  - DEVICE FAILURE [None]
  - URINARY TRACT INFECTION [None]
  - ANGINA PECTORIS [None]
  - CALCULUS URETERIC [None]
  - HYPERTENSION [None]
  - FEMUR FRACTURE [None]
  - OVERDOSE [None]
  - TONSILLECTOMY [None]
  - INCREASED TENDENCY TO BRUISE [None]
  - WEIGHT INCREASED [None]
  - RENAL COLIC [None]
  - ASTHMA [None]
  - CATHETERISATION CARDIAC ABNORMAL [None]
  - JOINT DISLOCATION [None]
  - NEPHROLITHIASIS [None]
  - BURSITIS [None]
  - HYPERTONIC BLADDER [None]
  - CORONARY ARTERY DISEASE [None]
  - OSTEOPOROSIS [None]
  - FOOT OPERATION [None]
  - HYPERLIPIDAEMIA [None]
  - MYOCARDIAL INFARCTION [None]
  - HYSTERECTOMY [None]
  - CARDIAC DISORDER [None]
  - BASAL CELL CARCINOMA [None]
  - DIZZINESS [None]
  - BUNION OPERATION [None]
  - THYROID DISORDER [None]
  - STRESS URINARY INCONTINENCE [None]
  - DRUG INEFFECTIVE [None]
  - GASTROOESOPHAGEAL REFLUX DISEASE [None]
  - HAEMORRHAGIC ANAEMIA [None]
  - OSTEOARTHRITIS [None]
  - BRONCHOSPASM [None]
  - TREMOR [None]
  - HAEMATURIA [None]
  - OSTEOPENIA [None]
  - GAIT DISTURBANCE [None]
